FAERS Safety Report 16050014 (Version 1)
Quarter: 2019Q1

REPORT INFORMATION
  Report Type: Spontaneous
  Country: FR (occurrence: FR)
  Receive Date: 20190308
  Receipt Date: 20190308
  Transmission Date: 20190418
  Serious: Yes (Other)
  Sender: FDA-Public Use
  Company Number: FR-ACCORD-111301

PATIENT
  Age: 65 Year
  Sex: Female

DRUGS (3)
  1. ENDOXAN [Suspect]
     Active Substance: CYCLOPHOSPHAMIDE
     Indication: BREAST CANCER
     Dosage: DATE AND TIME OF LAST ADMINISTRATION: 30-MAY-2018
     Route: 042
     Dates: start: 20180530
  2. FLUOROURACILE ACCORD [Suspect]
     Active Substance: FLUOROURACIL
     Indication: BREAST CANCER
     Dosage: DATE AND TIME OF LAST ADMINISTRATION: 30-MAY-2018
     Route: 042
     Dates: start: 20180530
  3. EPIRUBICINE MEDAC [Suspect]
     Active Substance: EPIRUBICIN HYDROCHLORIDE
     Indication: BREAST CANCER
     Dosage: DATE AND TIME OF LAST ADMINISTRATION: 30-MAY-2018
     Route: 042
     Dates: start: 20180530

REACTIONS (2)
  - Hypokalaemia [Recovered/Resolved]
  - Diarrhoea [Recovered/Resolved]

NARRATIVE: CASE EVENT DATE: 20180605
